FAERS Safety Report 15023081 (Version 1)
Quarter: 2018Q2

REPORT INFORMATION
  Report Type: Report from Study
  Country: US (occurrence: US)
  Receive Date: 20180618
  Receipt Date: 20180618
  Transmission Date: 20180711
  Serious: Yes (Other)
  Sender: FDA-Public Use
  Company Number: US-BAYER-2018-072873

PATIENT
  Age: 63 Year
  Sex: Male
  Weight: 86.17 kg

DRUGS (10)
  1. NEXAVAR [Suspect]
     Active Substance: SORAFENIB
     Indication: HEPATOCELLULAR CARCINOMA
     Dosage: 400 MG, BID
     Route: 048
     Dates: start: 20180328
  2. FISH OIL [Concomitant]
     Active Substance: FISH OIL
  3. HARVONI [Concomitant]
     Active Substance: LEDIPASVIR\SOFOSBUVIR
  4. PANTOPRAZOLE SODIUM. [Concomitant]
     Active Substance: PANTOPRAZOLE SODIUM
  5. POTASSIUM GLUCONATE [Concomitant]
     Active Substance: POTASSIUM GLUCONATE
     Dosage: 595(99)
  6. NEXAVAR [Suspect]
     Active Substance: SORAFENIB
     Indication: HEPATOCELLULAR CARCINOMA
     Dosage: 400 MG, BID
     Route: 048
  7. VITAMIN B12 [Concomitant]
     Active Substance: CYANOCOBALAMIN
  8. POTASSIUM [POTASSIUM] [Concomitant]
     Active Substance: POTASSIUM
  9. NEXAVAR [Suspect]
     Active Substance: SORAFENIB
     Indication: HEPATOCELLULAR CARCINOMA
     Dosage: 400 MG, BID
     Route: 048
  10. TRAMADOL HYDROCHLORIDE. [Concomitant]
     Active Substance: TRAMADOL HYDROCHLORIDE
     Dosage: UNK

REACTIONS (17)
  - Gingival abscess [None]
  - Visual impairment [None]
  - Therapeutic embolisation [None]
  - Tooth abscess [None]
  - Diarrhoea [None]
  - Nausea [Recovering/Resolving]
  - Headache [None]
  - Drug dose omission [None]
  - Pollakiuria [None]
  - Frequent bowel movements [None]
  - Fatigue [Unknown]
  - Nasopharyngitis [Recovered/Resolved]
  - Gait inability [None]
  - Unevaluable event [None]
  - Dyspnoea [None]
  - Headache [Unknown]
  - Fatigue [None]

NARRATIVE: CASE EVENT DATE: 20180510
